FAERS Safety Report 18794434 (Version 1)
Quarter: 2021Q1

REPORT INFORMATION
  Report Type: Report from Study
  Country: TR (occurrence: TR)
  Receive Date: 20210127
  Receipt Date: 20210127
  Transmission Date: 20210419
  Serious: Yes (Death, Hospitalization)
  Sender: FDA-Public Use
  Company Number: TR-MYLANLABS-2021M1005436

PATIENT
  Age: 46 Year
  Sex: Female

DRUGS (5)
  1. IRINOTECAN [Suspect]
     Active Substance: IRINOTECAN
     Indication: ADENOCARCINOMA OF COLON
     Dosage: 180 MILLIGRAM/SQ. METER(288MG) AS A PART OF FOLFIRI REGIMEN
     Route: 065
  2. LEUCOVORIN                         /00566701/ [Concomitant]
     Active Substance: LEUCOVORIN
     Indication: PROPHYLACTIC CHEMOTHERAPY
     Dosage: 400 MILLIGRAM/SQ. METER (640MG) AS A PART OF FOLFIRI REGIMEN
     Route: 065
  3. BEVACIZUMAB. [Suspect]
     Active Substance: BEVACIZUMAB
     Indication: METASTASES TO PERITONEUM
     Dosage: 5 MILLIGRAM/KILOGRAM 5 MG/KG (335MG)
     Route: 065
  4. FLUOROURACIL. [Suspect]
     Active Substance: FLUOROURACIL
     Indication: ADENOCARCINOMA OF COLON
     Dosage: 400 MILLIGRAM/SQ. METER(640MG) AS A PART OF FOLFIRI REGIMEN
     Route: 065
  5. BEVACIZUMAB. [Suspect]
     Active Substance: BEVACIZUMAB
     Indication: METASTASES TO LIVER

REACTIONS (3)
  - Hepatic encephalopathy [Fatal]
  - Hepatitis B reactivation [Fatal]
  - Hepatic failure [Fatal]
